FAERS Safety Report 16466847 (Version 1)
Quarter: 2019Q2

REPORT INFORMATION
  Report Type: Spontaneous
  Country: JP (occurrence: JP)
  Receive Date: 20190624
  Receipt Date: 20190624
  Transmission Date: 20190711
  Serious: Yes (Hospitalization)
  Sender: FDA-Public Use
  Company Number: JP-AMGEN-JPNSP2019097443

PATIENT
  Age: 53 Year
  Sex: Female
  Weight: 45.3 kg

DRUGS (1)
  1. PARSABIV [Suspect]
     Active Substance: ETELCALCETIDE HYDROCHLORIDE
     Indication: HYPERPARATHYROIDISM SECONDARY
     Dosage: DOSE UNSPECIFIED
     Route: 010

REACTIONS (4)
  - Road traffic accident [Unknown]
  - Blood calcium decreased [Unknown]
  - Radius fracture [Recovered/Resolved]
  - Ulna fracture [Recovered/Resolved]

NARRATIVE: CASE EVENT DATE: 20181113
